FAERS Safety Report 6366334-9 (Version None)
Quarter: 2009Q3

REPORT INFORMATION
  Report Type: 
  Country: None (occurrence: None)
  Receive Date: 20090921
  Receipt Date: 20090911
  Transmission Date: 20100115
  Serious: Yes (Other)
  Sender: FDA-Public Use
  Company Number: CH-AMGEN-US364907

PATIENT
  Age: 27 Year
  Sex: Male

DRUGS (1)
  1. ENBREL [Suspect]
     Indication: ANKYLOSING SPONDYLITIS
     Dosage: SINCE 2 YEARS, TREATMENT STOPPED IN 2009 BEFORE THE RENAL TRANSPLANTATION
     Route: 058
     Dates: end: 20090101

REACTIONS (3)
  - CONCOMITANT DISEASE PROGRESSION [None]
  - FAMILIAL MEDITERRANEAN FEVER [None]
  - RENAL AMYLOIDOSIS [None]
